FAERS Safety Report 9332114 (Version 2)
Quarter: 2013Q2

REPORT INFORMATION
  Report Type: Spontaneous
  Country: US (occurrence: US)
  Receive Date: 20130606
  Receipt Date: 20130625
  Transmission Date: 20140414
  Serious: Yes (Hospitalization, Other)
  Sender: FDA-Public Use
  Company Number: US-ROCHE-1231383

PATIENT
  Age: 30 Year
  Sex: Female
  Weight: 59.93 kg

DRUGS (5)
  1. XOLAIR [Suspect]
     Indication: ASTHMA
     Route: 058
     Dates: start: 20121022, end: 20121022
  2. SINGULAIR [Concomitant]
     Indication: ASTHMA
     Route: 048
     Dates: start: 20120531
  3. SYMBICORT [Concomitant]
     Indication: ASTHMA
     Dosage: 160/95 MG
     Route: 055
     Dates: start: 20120531
  4. SPIRIVA [Concomitant]
     Indication: ASTHMA
     Route: 055
     Dates: start: 20120528
  5. ALBUTEROL [Concomitant]
     Indication: ASTHMA
     Dosage: 2
     Route: 055
     Dates: start: 20120531

REACTIONS (1)
  - Hypersensitivity [Recovered/Resolved]
